FAERS Safety Report 8187916-8 (Version None)
Quarter: 2012Q1

REPORT INFORMATION
  Report Type: 
  Country: None (occurrence: None)
  Receive Date: 20120306
  Receipt Date: 20120228
  Transmission Date: 20120608
  Serious: Yes (Other)
  Sender: FDA-Public Use
  Company Number: US-GLAXOSMITHKLINE-A0967874A

PATIENT
  Age: 37 Year
  Sex: Male

DRUGS (6)
  1. PAROXETINE [Concomitant]
  2. AMITRIPTYLINE HCL [Concomitant]
  3. PROAIR HFA [Concomitant]
  4. CENTRUM MULTIVITAMIN [Concomitant]
  5. ADVAIR DISKUS 100/50 [Suspect]
     Indication: ASTHMA
     Dosage: 1PUFF TWICE PER DAY
     Route: 055
     Dates: start: 19960101
  6. LANSOPRAZOLE [Concomitant]

REACTIONS (5)
  - INHALATION THERAPY [None]
  - WHEEZING [None]
  - CHEST DISCOMFORT [None]
  - PRODUCT QUALITY ISSUE [None]
  - ASTHMA [None]
